FAERS Safety Report 21533727 (Version 3)
Quarter: 2023Q1

REPORT INFORMATION
  Report Type: Spontaneous
  Country: FR (occurrence: FR)
  Receive Date: 20221101
  Receipt Date: 20230324
  Transmission Date: 20230417
  Serious: Yes (Other)
  Sender: FDA-Public Use
  Company Number: FR-SA-SAC20221028000785

PATIENT
  Age: 59 Year
  Sex: Male
  Weight: 94 kg

DRUGS (2)
  1. ELIGLUSTAT [Suspect]
     Active Substance: ELIGLUSTAT
     Indication: Gaucher^s disease
     Dosage: 84 MG, BID
     Route: 048
     Dates: start: 202002
  2. ELIGLUSTAT [Suspect]
     Active Substance: ELIGLUSTAT
     Dosage: 84 MG, TID
     Route: 048

REACTIONS (6)
  - Thrombocytopenia [Unknown]
  - Disease progression [Recovering/Resolving]
  - Laboratory test abnormal [Unknown]
  - Bone pain [Unknown]
  - Drug ineffective [Unknown]
  - Loss of therapeutic response [Unknown]

NARRATIVE: CASE EVENT DATE: 20220101
